FAERS Safety Report 10232869 (Version 1)
Quarter: 2014Q2

REPORT INFORMATION
  Report Type: Spontaneous
  Country: US (occurrence: None)
  Receive Date: 20140611
  Receipt Date: 20140611
  Transmission Date: 20141212
  Serious: Yes (Death, Life-Threatening, Disabling)
  Sender: FDA-Public Use
  Company Number: None

PATIENT
  Age: 86 Year
  Sex: Female

DRUGS (18)
  1. LOVENOX [Suspect]
     Indication: THROMBOSIS PROPHYLAXIS
     Dosage: ONCE A YEAR?INFUSION
     Dates: start: 20121026, end: 20121112
  2. FEXOFENADINE [Concomitant]
  3. RAMIPRIL [Concomitant]
  4. CARVEDILOL [Concomitant]
  5. LASIX [Concomitant]
  6. RESTASIS [Concomitant]
  7. SYNTHROID [Concomitant]
  8. ALPRAZOLAM [Concomitant]
  9. RANITIDINE [Concomitant]
  10. MAXI VISION OCULAR [Concomitant]
  11. TYLENOL [Concomitant]
  12. FERROUS SULFATE [Concomitant]
  13. FLAX SEED OIL [Concomitant]
  14. VITAMIN B-12 [Concomitant]
  15. VITAMIN C [Concomitant]
  16. CENTRUM MULTIVITAMIN/MULTIMINERAL [Concomitant]
  17. CALTRATE CALCIUM 600 +D [Concomitant]
  18. GUAIFENESIN [Concomitant]

REACTIONS (2)
  - Intra-abdominal haematoma [None]
  - Haemorrhage [None]
